FAERS Safety Report 22302293 (Version 2)
Quarter: 2023Q2

REPORT INFORMATION
  Report Type: Spontaneous
  Country: US (occurrence: US)
  Receive Date: 20230510
  Receipt Date: 20230517
  Transmission Date: 20230721
  Serious: Yes (Other)
  Sender: FDA-Public Use
  Company Number: US-MLMSERVICE-20230424-4241814-1

PATIENT
  Age: 71 Year
  Sex: Male

DRUGS (7)
  1. PREDNISONE [Suspect]
     Active Substance: PREDNISONE
     Indication: Immunosuppressant drug therapy
     Dosage: 10 MILLIGRAM, DAILY
     Route: 065
  2. PREDNISONE [Suspect]
     Active Substance: PREDNISONE
     Dosage: 35 MILLIGRAM
     Route: 065
  3. PREDNISONE [Suspect]
     Active Substance: PREDNISONE
     Dosage: 5 MILLIGRAM
     Route: 065
  4. METHOTREXATE [Suspect]
     Active Substance: METHOTREXATE
     Indication: Immunosuppressant drug therapy
     Dosage: 12.5 MILLIGRAM, EVERY WEEK
     Route: 065
  5. METHOTREXATE [Suspect]
     Active Substance: METHOTREXATE
     Indication: Aneurysm
     Dosage: 10 MILLIGRAM, EVERY WEEK
     Route: 065
  6. IMIPENEM [Concomitant]
     Active Substance: IMIPENEM
     Indication: Nocardiosis
     Dosage: UNK
     Route: 065
  7. TEDIZOLID [Concomitant]
     Active Substance: TEDIZOLID
     Indication: Nocardiosis
     Dosage: UNK
     Route: 065

REACTIONS (3)
  - Steroid diabetes [Unknown]
  - Myopathy [Unknown]
  - Drug ineffective [Unknown]
